FAERS Safety Report 16879050 (Version 3)
Quarter: 2019Q4

REPORT INFORMATION
  Report Type: Spontaneous
  Country: RU (occurrence: RU)
  Receive Date: 20191002
  Receipt Date: 20191115
  Transmission Date: 20200122
  Serious: Yes (Other)
  Sender: FDA-Public Use
  Company Number: RU-ALEXION-A201914999

PATIENT
  Age: 3 Year

DRUGS (2)
  1. SOLIRIS [Suspect]
     Active Substance: ECULIZUMAB
     Indication: ATYPICAL HAEMOLYTIC URAEMIC SYNDROME
     Dosage: 600 MG, 4 TIMES
     Route: 042
     Dates: start: 20170627
  2. SOLIRIS [Suspect]
     Active Substance: ECULIZUMAB
     Dosage: 300 MG, Q2W
     Route: 042

REACTIONS (8)
  - Left ventricular dysfunction [Recovered/Resolved]
  - Asthenia [Recovered/Resolved]
  - Oesophagitis [Recovered/Resolved]
  - Gastritis erosive [Recovered/Resolved]
  - Duodenitis [Recovered/Resolved]
  - Pancreatitis acute [Recovered/Resolved]
  - Gastritis haemorrhagic [Recovered/Resolved]
  - Encephalopathy [Recovered/Resolved]
